FAERS Safety Report 5018563-4 (Version None)
Quarter: 2006Q2

REPORT INFORMATION
  Report Type: 
  Country: None (occurrence: None)
  Receive Date: 20060414
  Receipt Date: 20051221
  Transmission Date: 20061013
  Serious: No
  Sender: FDA-Public Use
  Company Number: 2005SP004481

PATIENT
  Age: 75 Year
  Sex: Female
  Weight: 47.1741 kg

DRUGS (4)
  1. LUNESTA [Suspect]
     Indication: INSOMNIA
     Dosage: SEE IMAGE
     Route: 048
     Dates: start: 20050801, end: 20050101
  2. LUNESTA [Suspect]
     Indication: INSOMNIA
     Dosage: SEE IMAGE
     Route: 048
     Dates: start: 20050101, end: 20051219
  3. SYNTHROID [Concomitant]
  4. XANAX [Concomitant]

REACTIONS (7)
  - BURNING SENSATION [None]
  - DRUG EFFECT DECREASED [None]
  - DRUG WITHDRAWAL SYNDROME [None]
  - HALLUCINATION [None]
  - HYPERHIDROSIS [None]
  - NAUSEA [None]
  - TREMOR [None]
